FAERS Safety Report 5532396-1 (Version None)
Quarter: 2007Q4

REPORT INFORMATION
  Report Type: 
  Country: None (occurrence: None)
  Receive Date: 20071203
  Receipt Date: 20071121
  Transmission Date: 20080405
  Serious: Yes (Other)
  Sender: FDA-Public Use
  Company Number: US-PFIZER INC-2006155453

PATIENT
  Sex: Male

DRUGS (4)
  1. VIAGRA [Suspect]
     Route: 048
  2. LUMIGAN [Concomitant]
     Dosage: TEXT:0.03%
  3. XALATAN [Concomitant]
     Dosage: TEXT:0.005%
  4. TRAVATAN [Concomitant]
     Dosage: TEXT:0.004%

REACTIONS (3)
  - BLINDNESS [None]
  - BLINDNESS UNILATERAL [None]
  - OPTIC ISCHAEMIC NEUROPATHY [None]
